FAERS Safety Report 10145209 (Version 1)
Quarter: 2014Q2

REPORT INFORMATION
  Report Type: Spontaneous
  Country: US (occurrence: US)
  Receive Date: 20140501
  Receipt Date: 20140501
  Transmission Date: 20141212
  Serious: No
  Sender: FDA-Public Use
  Company Number: US-BIOGENIDEC-2014BI036986

PATIENT
  Age: 38 Year
  Sex: Female

DRUGS (17)
  1. TECFIDERA [Suspect]
     Indication: MULTIPLE SCLEROSIS
     Route: 048
     Dates: start: 20140327
  2. NORCO 5-325 [Concomitant]
  3. CLONAZEPAM [Concomitant]
  4. AMITRIPTYLINE [Concomitant]
  5. BACLOFEN [Concomitant]
  6. FAMOTIDINE [Concomitant]
  7. FLUOXETINE [Concomitant]
  8. XANAX [Concomitant]
  9. TOPAMAX [Concomitant]
  10. POTASSIUM CL ER 10MEQ [Concomitant]
  11. WELLBUTRIN SR [Concomitant]
  12. HYDROCHLOROTHIAZIDE [Concomitant]
  13. METOPROLOL TARTRATE [Concomitant]
  14. FERROUS SULFATE [Concomitant]
  15. COLACE [Concomitant]
  16. VITAMIN D [Concomitant]
  17. FOLIC ACID [Concomitant]

REACTIONS (7)
  - Anxiety [Unknown]
  - Urine output decreased [Unknown]
  - Vomiting [Unknown]
  - Nausea [Unknown]
  - Diarrhoea [Unknown]
  - Flushing [Recovered/Resolved]
  - Pruritus [Recovered/Resolved]
